FAERS Safety Report 18266592 (Version 4)
Quarter: 2020Q4

REPORT INFORMATION
  Report Type: Spontaneous
  Country: AT (occurrence: AT)
  Receive Date: 20200915
  Receipt Date: 20201217
  Transmission Date: 20210113
  Serious: Yes (Other)
  Sender: FDA-Public Use
  Company Number: AT-PFIZER INC-2020350825

PATIENT
  Age: 64 Year
  Sex: Female

DRUGS (7)
  1. CARBOPLATIN. [Suspect]
     Active Substance: CARBOPLATIN
     Indication: OVARIAN CANCER STAGE III
     Dosage: 6 DF, CYCLIC
  2. PACLITAXEL. [Suspect]
     Active Substance: PACLITAXEL
     Indication: OVARIAN CANCER STAGE III
  3. GEMCITABINE [GEMCITABINE HYDROCHLORIDE] [Suspect]
     Active Substance: GEMCITABINE HYDROCHLORIDE
     Dosage: UNK
  4. CARBOPLATIN. [Suspect]
     Active Substance: CARBOPLATIN
     Indication: OVARIAN EPITHELIAL CANCER
     Dosage: UNK
     Dates: start: 201804
  5. NIRAPARIB [Suspect]
     Active Substance: NIRAPARIB
     Dosage: 3 DF, DAILY  (3 CAPSULES OF 100 MG PER DAY)
  6. PACLITAXEL. [Suspect]
     Active Substance: PACLITAXEL
     Indication: OVARIAN EPITHELIAL CANCER
     Dosage: 1 DF, CYCLIC
     Dates: start: 201804
  7. NIRAPARIB [Suspect]
     Active Substance: NIRAPARIB
     Dosage: 2 DF, DAILY (2 CAPSULES OF 100 MG PER DAY)

REACTIONS (2)
  - Thrombocytopenia [Unknown]
  - Polyneuropathy [Recovered/Resolved]

NARRATIVE: CASE EVENT DATE: 201804
